FAERS Safety Report 9207585 (Version 3)
Quarter: 2013Q2

REPORT INFORMATION
  Report Type: Spontaneous
  Country: FR (occurrence: FR)
  Receive Date: 20130403
  Receipt Date: 20130422
  Transmission Date: 20140414
  Serious: Yes (Death, Life-Threatening, Hospitalization)
  Sender: FDA-Public Use
  Company Number: FR-ROCHE-1209512

PATIENT
  Age: 61 Year
  Sex: Female
  Weight: 56 kg

DRUGS (14)
  1. MABTHERA [Suspect]
     Indication: RHEUMATOID ARTHRITIS
     Dosage: LAST INFUSION ON /MAR/2012
     Route: 041
     Dates: start: 20070504, end: 20120307
  2. MABTHERA [Suspect]
     Route: 041
     Dates: start: 20070504, end: 20120307
  3. METHOTREXATE [Concomitant]
     Indication: RHEUMATOID ARTHRITIS
     Dosage: 10-12.5 MG
     Route: 048
     Dates: start: 2007
  4. METHOTREXATE [Concomitant]
     Route: 048
     Dates: start: 2007
  5. COVERSYL [Concomitant]
     Indication: PHLEBITIS
     Route: 065
  6. PREDNISONE [Concomitant]
     Indication: RHEUMATOID ARTHRITIS
     Route: 048
     Dates: start: 2007
  7. ACTONEL [Concomitant]
     Indication: OSTEOPOROSIS
     Route: 048
     Dates: start: 2009
  8. GLUCOPHAGE [Concomitant]
     Route: 048
  9. CRESTOR [Concomitant]
     Indication: DYSLIPIDAEMIA
     Route: 048
  10. TARDYFERON [Concomitant]
     Route: 048
  11. SPECIAFOLDINE [Concomitant]
     Indication: PROPHYLAXIS
     Route: 048
     Dates: start: 2007
  12. DIFFU K [Concomitant]
     Indication: HYPOKALAEMIA
     Route: 048
  13. SYMBICORT [Concomitant]
     Indication: ASTHMA
     Route: 045
  14. IXPRIM [Concomitant]
     Indication: ARTHRALGIA
     Route: 048

REACTIONS (2)
  - Peritoneal haemorrhage [Fatal]
  - Peliosis hepatis [Fatal]
